FAERS Safety Report 4707637-0 (Version None)
Quarter: 2005Q3

REPORT INFORMATION
  Report Type: 
  Country: None (occurrence: None)
  Receive Date: 20050706
  Receipt Date: 20050628
  Transmission Date: 20060218
  Serious: Yes (Hospitalization)
  Sender: FDA-Public Use
  Company Number: JP-MERCK-0506USA04081

PATIENT
  Age: 72 Year
  Sex: Female

DRUGS (3)
  1. FOSAMAX [Suspect]
     Indication: OSTEOPOROSIS
     Route: 048
     Dates: start: 20040713, end: 20050507
  2. GASTER [Concomitant]
     Route: 065
  3. MEVALOTIN [Suspect]
     Route: 065

REACTIONS (1)
  - DRUG ERUPTION [None]
